FAERS Safety Report 15796842 (Version 1)
Quarter: 2019Q1

REPORT INFORMATION
  Report Type: Spontaneous
  Country: CN (occurrence: CN)
  Receive Date: 20190108
  Receipt Date: 20190108
  Transmission Date: 20190417
  Serious: Yes (Other)
  Sender: FDA-Public Use
  Company Number: CN-ASTRAZENECA-2019SE02057

PATIENT
  Sex: Male
  Weight: 69 kg

DRUGS (6)
  1. GLUTATHIONE [Concomitant]
     Active Substance: GLUTATHIONE
     Indication: ENZYME ABNORMALITY
     Route: 048
     Dates: start: 20181116, end: 20181119
  2. REPAGLINIDE. [Suspect]
     Active Substance: REPAGLINIDE
     Indication: DIABETES MELLITUS
     Route: 048
     Dates: start: 20181116, end: 20181119
  3. SAXAGLIPTIN [Suspect]
     Active Substance: SAXAGLIPTIN
     Indication: DIABETES MELLITUS
     Route: 048
     Dates: start: 20181116, end: 20181119
  4. GLUTATHIONE [Concomitant]
     Active Substance: GLUTATHIONE
     Indication: LIVER DISORDER
     Route: 048
     Dates: start: 20181116, end: 20181119
  5. BENAZEPRIL HYDROCHLORIDE. [Concomitant]
     Active Substance: BENAZEPRIL HYDROCHLORIDE
     Indication: HYPERTENSION
     Route: 048
     Dates: start: 20181116, end: 20181119
  6. INSULIN DETEMIR [Suspect]
     Active Substance: INSULIN DETEMIR
     Indication: DIABETES MELLITUS
     Dosage: 14 U DAILY
     Route: 058
     Dates: start: 20181116, end: 20181119

REACTIONS (1)
  - Hypoglycaemic coma [Recovered/Resolved]
